FAERS Safety Report 8403283-6 (Version None)
Quarter: 2012Q2

REPORT INFORMATION
  Report Type: 
  Country: None (occurrence: None)
  Receive Date: 20120601
  Receipt Date: 20120523
  Transmission Date: 20120825
  Serious: Yes (Other)
  Sender: FDA-Public Use
  Company Number: AU-ROCHE-1072182

PATIENT
  Sex: Male

DRUGS (3)
  1. ZELBORAF [Suspect]
     Indication: PRODUCT USED FOR UNKNOWN INDICATION
  2. ZELBORAF [Suspect]
  3. ZELBORAF [Suspect]

REACTIONS (5)
  - RASH [None]
  - KERATOACANTHOMA [None]
  - CHOLESTASIS [None]
  - NERVOUS SYSTEM DISORDER [None]
  - CHOLANGITIS [None]
